FAERS Safety Report 15571725 (Version 3)
Quarter: 2018Q4

REPORT INFORMATION
  Report Type: Spontaneous
  Country: DE (occurrence: DE)
  Receive Date: 20181031
  Receipt Date: 20181221
  Transmission Date: 20190205
  Serious: Yes (Other)
  Sender: FDA-Public Use
  Company Number: DE-BAYER-2018-196440

PATIENT
  Age: 80 Year
  Sex: Male
  Weight: 65 kg

DRUGS (1)
  1. GADOVIST [Suspect]
     Active Substance: GADOBUTROL
     Indication: NUCLEAR MAGNETIC RESONANCE IMAGING
     Dosage: 16 ML, UNK
     Route: 042

REACTIONS (38)
  - Pruritus [Unknown]
  - Rhinorrhoea [Unknown]
  - Diarrhoea [Unknown]
  - Impaired work ability [Unknown]
  - Overdose [Unknown]
  - Bone pain [Not Recovered/Not Resolved]
  - Fatigue [Unknown]
  - Neck pain [Unknown]
  - Syncope [Unknown]
  - Skin burning sensation [Unknown]
  - Consciousness fluctuating [Unknown]
  - Drug clearance decreased [Unknown]
  - Muscle spasms [Unknown]
  - Skin induration [Unknown]
  - Visual acuity reduced [Unknown]
  - Neck pain [Not Recovered/Not Resolved]
  - Chest pain [Recovering/Resolving]
  - Skin discomfort [Unknown]
  - Visual impairment [Unknown]
  - Hiccups [Unknown]
  - Skin plaque [Unknown]
  - Contrast media toxicity [Unknown]
  - Dyspnoea [Recovering/Resolving]
  - Abdominal pain [Unknown]
  - Erectile dysfunction [Unknown]
  - Myalgia [Not Recovered/Not Resolved]
  - Pain [Unknown]
  - Arrhythmia [Unknown]
  - Gastrointestinal pain [Unknown]
  - Diplopia [Unknown]
  - Gait disturbance [Not Recovered/Not Resolved]
  - Hypersensitivity [Unknown]
  - Loss of consciousness [Unknown]
  - Hypopnoea [Unknown]
  - Headache [Not Recovered/Not Resolved]
  - Renal pain [Unknown]
  - Testicular pain [Recovering/Resolving]
  - Heart rate decreased [Unknown]

NARRATIVE: CASE EVENT DATE: 2018
